FAERS Safety Report 8228006-5 (Version None)
Quarter: 2012Q1

REPORT INFORMATION
  Report Type: 
  Country: None (occurrence: None)
  Receive Date: 20120322
  Receipt Date: 20120125
  Transmission Date: 20120608
  Serious: No
  Sender: FDA-Public Use
  Company Number: US-BRISTOL-MYERS SQUIBB COMPANY-16368177

PATIENT
  Age: 69 Year
  Sex: Male
  Weight: 55 kg

DRUGS (1)
  1. ERBITUX [Suspect]
     Indication: THROAT CANCER
     Dosage: 4 TREATMENTS
     Dates: start: 20111201

REACTIONS (6)
  - OROPHARYNGEAL PAIN [None]
  - RASH PAPULAR [None]
  - DYSPHAGIA [None]
  - HAEMORRHOIDS [None]
  - ORAL PAIN [None]
  - CONSTIPATION [None]
